FAERS Safety Report 26055751 (Version 1)
Quarter: 2025Q4

REPORT INFORMATION
  Report Type: Spontaneous
  Country: US (occurrence: US)
  Receive Date: 20251117
  Receipt Date: 20251117
  Transmission Date: 20260118
  Serious: Yes (Life-Threatening, Hospitalization)
  Sender: ACCORD
  Company Number: US-MLMSERVICE-20251029-PI691135-00121-3

PATIENT
  Age: 60 Year
  Sex: Male

DRUGS (1)
  1. DILTIAZEM [Suspect]
     Active Substance: DILTIAZEM
     Indication: Product used for unknown indication
     Dosage: INTENTIONAL INGESTION OF 30-40 TABLETS OF EXTENDED-RELEASE DILTIAZEM 180 MG
     Route: 048

REACTIONS (3)
  - Distributive shock [Recovered/Resolved]
  - Intentional overdose [Unknown]
  - Cardiogenic shock [Recovered/Resolved]
